FAERS Safety Report 9785045 (Version 2)
Quarter: 2013Q4

REPORT INFORMATION
  Report Type: Spontaneous
  Country: MX (occurrence: MX)
  Receive Date: 20131227
  Receipt Date: 20131227
  Transmission Date: 20140711
  Serious: Yes (Hospitalization, Other)
  Sender: FDA-Public Use
  Company Number: MX-009507513-1312MEX009183

PATIENT
  Age: 18 Year
  Sex: Male
  Weight: 100 kg

DRUGS (1)
  1. CRONOLEVEL [Suspect]
     Indication: RASH
     Dosage: SIGLE DOSE, ONCE
     Route: 030
     Dates: start: 20131213, end: 20131213

REACTIONS (3)
  - Anaphylactoid reaction [Recovering/Resolving]
  - Urinary retention [Recovered/Resolved]
  - Pharyngitis [Recovering/Resolving]
